FAERS Safety Report 24636175 (Version 1)
Quarter: 2024Q4

REPORT INFORMATION
  Report Type: Spontaneous
  Country: CA (occurrence: CA)
  Receive Date: 20241119
  Receipt Date: 20241119
  Transmission Date: 20250115
  Serious: Yes (Other)
  Sender: TAKEDA
  Company Number: CA-TAKEDA-2024TUS114377

PATIENT
  Age: 62 Year
  Sex: Female
  Weight: 51 kg

DRUGS (9)
  1. HUMAN C1-ESTERASE INHIBITOR [Suspect]
     Active Substance: HUMAN C1-ESTERASE INHIBITOR
     Indication: Hereditary angioedema with C1 esterase inhibitor deficiency
     Dosage: UNK UNK, 3/WEEK
  2. HUMAN C1-ESTERASE INHIBITOR [Suspect]
     Active Substance: HUMAN C1-ESTERASE INHIBITOR
  3. HUMAN C1-ESTERASE INHIBITOR [Suspect]
     Active Substance: HUMAN C1-ESTERASE INHIBITOR
  4. CANDESARTAN [Concomitant]
     Active Substance: CANDESARTAN
     Dosage: 32 MILLIGRAM, QD
  5. CHLORTHALIDONE [Concomitant]
     Active Substance: CHLORTHALIDONE
     Dosage: 50 MILLIGRAM
  6. ETANERCEPT [Concomitant]
     Active Substance: ETANERCEPT
     Dosage: 50 MILLIGRAM, 1/WEEK
  7. METOPROLOL TARTRATE [Concomitant]
     Active Substance: METOPROLOL TARTRATE
     Dosage: 25 MILLIGRAM, QD
  8. RABEPRAZOLE [Concomitant]
     Active Substance: RABEPRAZOLE
     Dosage: 20 MILLIGRAM, QD
  9. SYNTHROID [Concomitant]
     Active Substance: LEVOTHYROXINE SODIUM
     Dosage: 112 MILLIGRAM, QD

REACTIONS (3)
  - Back disorder [Unknown]
  - Gait inability [Unknown]
  - Illness [Unknown]
